FAERS Safety Report 11427269 (Version 1)
Quarter: 2015Q3

REPORT INFORMATION
  Report Type: Spontaneous
  Country: US (occurrence: None)
  Receive Date: 20150826
  Receipt Date: 20150826
  Transmission Date: 20151125
  Serious: Yes (Death)
  Sender: FDA-Public Use
  Company Number: BR15-229-AE

PATIENT
  Age: 35 Year
  Sex: Male

DRUGS (14)
  1. BUPRENORPHINE/NALOXONE [Suspect]
     Active Substance: BUPRENORPHINE\NALOXONE
     Indication: PAIN
     Dates: start: 20140828, end: 20140830
  2. DIAZEPAM. [Concomitant]
     Active Substance: DIAZEPAM
  3. DULOXETINE. [Concomitant]
     Active Substance: DULOXETINE
  4. HYDROXYZINE HCL [Suspect]
     Active Substance: HYDROXYZINE HYDROCHLORIDE
     Dates: end: 20140830
  5. OMEPRAZOLE. [Concomitant]
     Active Substance: OMEPRAZOLE
  6. FIORICET [Concomitant]
     Active Substance: ACETAMINOPHEN\BUTALBITAL\CAFFEINE
  7. NICOTINE RESIN [Concomitant]
     Active Substance: NICOTINE
  8. TB SKIN TEST [Concomitant]
     Active Substance: TUBERCULIN, TINE TEST
  9. TEMAZEPAM. [Concomitant]
     Active Substance: TEMAZEPAM
  10. ATOMOXETINE [Concomitant]
     Active Substance: ATOMOXETINE
  11. DIPHENHYDRAMINE. [Concomitant]
     Active Substance: DIPHENHYDRAMINE
  12. QUETIAPINE [Concomitant]
     Active Substance: QUETIAPINE
  13. CHOLECALCIFEROL [Concomitant]
     Active Substance: CHOLECALCIFEROL
  14. TRAMADOL HYDROCHLORIDE. [Suspect]
     Active Substance: TRAMADOL HYDROCHLORIDE
     Dates: end: 20140830

REACTIONS (4)
  - Toxicity to various agents [None]
  - Prescribed overdose [None]
  - Unresponsive to stimuli [None]
  - Drug dependence [None]

NARRATIVE: CASE EVENT DATE: 20140830
